FAERS Safety Report 4502788-8 (Version None)
Quarter: 2004Q4

REPORT INFORMATION
  Report Type: 
  Country: None (occurrence: None)
  Receive Date: 20041116
  Receipt Date: 20041116
  Transmission Date: 20050328
  Serious: Yes (Death, Hospitalization)
  Sender: FDA-Public Use
  Company Number: None

PATIENT
  Age: 71 Year
  Sex: Male
  Weight: 64 kg

DRUGS (9)
  1. RAPAMYCIN 1 MG PO UNIVERSITY OF CHICAGO [Suspect]
     Indication: GALLBLADDER CANCER
     Dosage: 1MG QWEEK ORAL
     Route: 048
     Dates: start: 20041027, end: 20041027
  2. RAPAMYCIN 1 MG PO UNIVERSITY OF CHICAGO [Suspect]
     Indication: METASTASIS
     Dosage: 1MG QWEEK ORAL
     Route: 048
     Dates: start: 20041027, end: 20041027
  3. COUMADIN [Concomitant]
  4. IRON [Concomitant]
  5. MARINOL [Concomitant]
  6. MS CONTIN [Concomitant]
  7. TYLENOL [Concomitant]
  8. M.V.I. [Concomitant]
  9. PROTONIX [Concomitant]

REACTIONS (1)
  - DYSPNOEA [None]
